FAERS Safety Report 6330661-1 (Version None)
Quarter: 2009Q3

REPORT INFORMATION
  Report Type: 
  Country: None (occurrence: None)
  Receive Date: 20090827
  Receipt Date: 20070522
  Transmission Date: 20100115
  Serious: Yes (Other)
  Sender: FDA-Public Use
  Company Number: US-ASTRAZENECA-2006UW25525

PATIENT
  Age: 546 Month
  Sex: Female
  Weight: 92.1 kg

DRUGS (20)
  1. SEROQUEL [Suspect]
     Indication: DEPRESSION
     Dosage: 50-900 MG
     Route: 048
     Dates: start: 20020308
  2. SEROQUEL [Suspect]
     Indication: HALLUCINATION
     Dosage: 50-900 MG
     Route: 048
     Dates: start: 20020308
  3. ABILIFY [Concomitant]
  4. RISPERDAL [Concomitant]
  5. ZYPREXA [Concomitant]
  6. MARIJUANA [Concomitant]
     Dates: start: 19700101
  7. CELEXA [Concomitant]
     Dates: start: 20010608
  8. DEPAKOTE ER [Concomitant]
     Dosage: 750-1000 MG
     Route: 048
     Dates: start: 20010608
  9. AVANDAMET [Concomitant]
     Dosage: 500 MG/4 MG, 2 AT NOONTIME
     Dates: start: 20030930
  10. WELLBUTRIN SR [Concomitant]
     Dosage: 200-300 MG
     Dates: start: 20030930
  11. TOPAMAX [Concomitant]
     Route: 048
     Dates: start: 20030930
  12. LEXAPRO [Concomitant]
     Route: 048
     Dates: start: 20030129
  13. ZANTAC [Concomitant]
     Dosage: 150-450 MG, PRN
     Route: 048
     Dates: start: 20010608
  14. TEGRETOL [Concomitant]
     Dosage: 300-600 MG
     Dates: start: 20040126
  15. HUMULIN N [Concomitant]
     Dosage: 20 UNITS QAM
     Dates: start: 20040126
  16. LANTUS [Concomitant]
     Dosage: 36-110 UNITS
     Dates: start: 20030930
  17. FLEXERIL [Concomitant]
     Dosage: 10 MG PRN
     Dates: start: 20040126
  18. HYDROCODONE [Concomitant]
     Dosage: 7.5 MG, 2 OR 3 PER DAY
     Dates: start: 20050504
  19. CYMBALTA [Concomitant]
     Dates: start: 20061016
  20. REQUIP [Concomitant]
     Dates: start: 20061016

REACTIONS (8)
  - DIABETES MELLITUS [None]
  - DIABETES MELLITUS INADEQUATE CONTROL [None]
  - DIABETIC FOOT [None]
  - DIABETIC KETOACIDOSIS [None]
  - DIABETIC NEPHROPATHY [None]
  - DIABETIC NEUROPATHY [None]
  - INSULIN-REQUIRING TYPE 2 DIABETES MELLITUS [None]
  - TYPE 2 DIABETES MELLITUS [None]
